FAERS Safety Report 6397735-0 (Version None)
Quarter: 2009Q4

REPORT INFORMATION
  Report Type: 
  Country: None (occurrence: None)
  Receive Date: 20091006
  Receipt Date: 20090924
  Transmission Date: 20100525
  Serious: Yes (Death, Hospitalization)
  Sender: FDA-Public Use
  Company Number: 231470K07USA

PATIENT
  Age: 68 Year
  Sex: Female

DRUGS (6)
  1. REBIF [Suspect]
     Indication: MULTIPLE SCLEROSIS
     Dosage: 44 MCG, 3 IN 1 WEEKS, SUBCUTANEOUS
     Route: 058
     Dates: start: 20031015, end: 20071229
  2. AMANTADINE HCL [Concomitant]
  3. PROVIGIL [Concomitant]
  4. ZOLOFT [Concomitant]
  5. LYRICA [Concomitant]
  6. COUMADIN [Concomitant]

REACTIONS (4)
  - ATRIAL SEPTAL DEFECT [None]
  - NEPHROLITHIASIS [None]
  - PULMONARY HYPERTENSION [None]
  - SCLERODERMA [None]
